FAERS Safety Report 6160803-2 (Version None)
Quarter: 2009Q2

REPORT INFORMATION
  Report Type: 
  Country: None (occurrence: None)
  Receive Date: 20090420
  Receipt Date: 20090416
  Transmission Date: 20091009
  Serious: Yes (Death)
  Sender: FDA-Public Use
  Company Number: PHHY2009BR14563

PATIENT
  Age: 82 Year
  Sex: Female

DRUGS (2)
  1. DIOVAN HCT [Suspect]
     Route: 048
  2. EXELON [Suspect]

REACTIONS (1)
  - DEATH [None]
